FAERS Safety Report 19044044 (Version 1)
Quarter: 2021Q1

REPORT INFORMATION
  Report Type: Spontaneous
  Country: CN (occurrence: CN)
  Receive Date: 20210323
  Receipt Date: 20210323
  Transmission Date: 20210420
  Serious: Yes (Other)
  Sender: FDA-Public Use
  Company Number: CN-FERRINGPH-2021FE01677

PATIENT
  Age: 37 Year
  Sex: Female
  Weight: 87 kg

DRUGS (1)
  1. PROPESS [Suspect]
     Active Substance: DINOPROSTONE
     Indication: INDUCTION OF CERVIX RIPENING
     Dosage: 10 MG, ONCE/SINGLE
     Route: 067
     Dates: start: 20190416, end: 20190416

REACTIONS (5)
  - Nausea [Recovering/Resolving]
  - Seizure [Recovering/Resolving]
  - Chest discomfort [Recovering/Resolving]
  - Uterine tachysystole [Recovering/Resolving]
  - Chills [Recovering/Resolving]

NARRATIVE: CASE EVENT DATE: 20190416
